FAERS Safety Report 10993426 (Version 1)
Quarter: 2015Q2

REPORT INFORMATION
  Report Type: Spontaneous
  Country: US (occurrence: None)
  Receive Date: 20150406
  Receipt Date: 20150406
  Transmission Date: 20150821
  Serious: Yes (Other)
  Sender: FDA-Public Use
  Company Number: None

PATIENT
  Age: 54 Year
  Sex: Female
  Weight: 58.97 kg

DRUGS (18)
  1. BENICAR [Concomitant]
     Active Substance: OLMESARTAN MEDOXOMIL
  2. NEXIUM [Concomitant]
     Active Substance: ESOMEPRAZOLE MAGNESIUM
  3. CLONIDINE. [Concomitant]
     Active Substance: CLONIDINE
  4. FLEXERIL [Concomitant]
     Active Substance: CYCLOBENZAPRINE HYDROCHLORIDE
  5. PROAIR HFA [Concomitant]
     Active Substance: ALBUTEROL SULFATE
  6. ARIMIDEX [Suspect]
     Active Substance: ANASTROZOLE
     Indication: BREAST CANCER
     Dates: start: 20070415, end: 20120415
  7. HYDROCODONE [Concomitant]
     Active Substance: HYDROCODONE
  8. COQ10 [Concomitant]
     Active Substance: UBIDECARENONE
  9. MAGNESIUM [Concomitant]
     Active Substance: MAGNESIUM
  10. AZELASTIN [Concomitant]
  11. RALOXIFENE [Concomitant]
     Active Substance: RALOXIFENE
  12. VITAMIN B12 [Concomitant]
     Active Substance: CYANOCOBALAMIN
  13. ADVAIR HFA [Concomitant]
     Active Substance: FLUTICASONE PROPIONATE\SALMETEROL XINAFOATE
  14. AMBIEN [Concomitant]
     Active Substance: ZOLPIDEM TARTRATE
  15. CALCIUM [Concomitant]
     Active Substance: CALCIUM
  16. ASA [Concomitant]
     Active Substance: ASPIRIN
  17. GABAPENTIN. [Concomitant]
     Active Substance: GABAPENTIN
  18. FLONASE [Concomitant]
     Active Substance: FLUTICASONE PROPIONATE

REACTIONS (6)
  - Wound [None]
  - Concussion [None]
  - Contusion [None]
  - Laceration [None]
  - Excoriation [None]
  - Fall [None]
